FAERS Safety Report 23876577 (Version 1)
Quarter: 2024Q2

REPORT INFORMATION
  Report Type: Spontaneous
  Country: CN (occurrence: CN)
  Receive Date: 20240521
  Receipt Date: 20240521
  Transmission Date: 20240716
  Serious: Yes (Other)
  Sender: FDA-Public Use
  Company Number: CN-002147023-NVSC2024CN104774

PATIENT
  Age: 76 Year
  Sex: Female
  Weight: 81 kg

DRUGS (4)
  1. OXCARBAZEPINE [Suspect]
     Active Substance: OXCARBAZEPINE
     Indication: Affective disorder
     Dosage: 0.45 G, QD (0.3G QD, 0.15G QN PO)
     Route: 048
     Dates: start: 20240429, end: 20240506
  2. PERPHENAZINE [Suspect]
     Active Substance: PERPHENAZINE
     Indication: Psychotic symptom
     Dosage: 1.25 MG, QD
     Route: 030
     Dates: start: 20240425, end: 20240508
  3. QUETIAPINE FUMARATE [Suspect]
     Active Substance: QUETIAPINE FUMARATE
     Indication: Psychotic symptom
     Dosage: 75 MG, QD
     Route: 048
     Dates: start: 20240505, end: 20240508
  4. ATORVASTATIN CALCIUM [Suspect]
     Active Substance: ATORVASTATIN CALCIUM
     Indication: Lipids increased
     Dosage: 20 MG, QD
     Route: 048
     Dates: start: 20240424, end: 20240508

REACTIONS (2)
  - Hepatic function abnormal [Recovering/Resolving]
  - Off label use [Unknown]

NARRATIVE: CASE EVENT DATE: 20240508
